FAERS Safety Report 10502513 (Version 1)
Quarter: 2014Q3

REPORT INFORMATION
  Report Type: Spontaneous
  Country: US (occurrence: None)
  Receive Date: 20140915
  Receipt Date: 20140915
  Transmission Date: 20150326
  Serious: Yes (Hospitalization)
  Sender: FDA-Public Use
  Company Number: PHEH2014US013230

PATIENT
  Age: 92 Year
  Sex: Female

DRUGS (18)
  1. ATORVASTATIN [Concomitant]
     Active Substance: ATORVASTATIN
  2. BUMETANIDE. [Concomitant]
     Active Substance: BUMETANIDE
  3. FISH OIL [Concomitant]
     Active Substance: FISH OIL
  4. VITAMIN B12 [Concomitant]
     Active Substance: CYANOCOBALAMIN
  5. LEVOTHYROXINE [Concomitant]
     Active Substance: LEVOTHYROXINE
  6. VITAMIN B3 (NICOTIAMIDE) [Concomitant]
  7. CALCIUM [Concomitant]
     Active Substance: CALCIUM
  8. RANITIDINE [Concomitant]
     Active Substance: RANITIDINE\RANITIDINE HYDROCHLORIDE
  9. VITAMIN C [Concomitant]
     Active Substance: ASCORBIC ACID
  10. L-ARGIINE HCL (ARGIINE HYDROCHLORIDE) [Concomitant]
  11. PLAVIX (CLOPIDOGREL BISULFATE) [Concomitant]
  12. DIOVAN [Suspect]
     Active Substance: VALSARTAN
  13. BIOTIN [Concomitant]
     Active Substance: BIOTIN
  14. HYDRALAZINE [Concomitant]
     Active Substance: HYDRALAZINE HYDROCHLORIDE
  15. LIPITOR (ATORVASTATIN CALCICUM) [Concomitant]
  16. ASPIRIN. [Concomitant]
     Active Substance: ASPIRIN
  17. COQ10 (UBIDECARENONE) [Concomitant]
     Active Substance: UBIDECARENONE
  18. POTASSIUM [Concomitant]
     Active Substance: POTASSIUM

REACTIONS (2)
  - Blood pressure fluctuation [None]
  - Thrombosis [None]
